FAERS Safety Report 15584579 (Version 1)
Quarter: 2018Q4

REPORT INFORMATION
  Report Type: Report from Study
  Country: FR (occurrence: FR)
  Receive Date: 20181102
  Receipt Date: 20181102
  Transmission Date: 20190205
  Serious: Yes (Hospitalization)
  Sender: FDA-Public Use
  Company Number: FR-BAYER-2018-198125

PATIENT
  Age: 68 Year
  Sex: Male
  Weight: 74 kg

DRUGS (8)
  1. SMECTA [SMECTITE] [Concomitant]
     Indication: DIARRHOEA
     Dosage: UNK
     Route: 048
     Dates: start: 20181002
  2. COPANLISIB. [Suspect]
     Active Substance: COPANLISIB
     Indication: METASTASIS
  3. CETUXIMAB. [Suspect]
     Active Substance: CETUXIMAB
     Indication: SQUAMOUS CELL CARCINOMA OF HEAD AND NECK
     Dosage: 452.5 MG, QD
     Route: 042
     Dates: start: 20180924, end: 20181016
  4. COPANLISIB. [Suspect]
     Active Substance: COPANLISIB
     Indication: SQUAMOUS CELL CARCINOMA OF HEAD AND NECK
     Dosage: 30 MG, QD
     Route: 042
     Dates: start: 20180924, end: 20181008
  5. CETUXIMAB. [Suspect]
     Active Substance: CETUXIMAB
     Indication: METASTASIS
  6. MAG [Concomitant]
     Indication: BLOOD ELECTROLYTES ABNORMAL
     Dosage: UNK
     Route: 058
     Dates: start: 20170615
  7. DUROGESIC [Concomitant]
     Active Substance: FENTANYL
     Indication: NECK PAIN
     Dosage: UNK
     Route: 048
     Dates: start: 20170615
  8. PHOSPHONEUROS [Concomitant]
     Active Substance: CALCIUM PHOSPHATE, DIBASIC, ANHYDROUS\MAGNESIUM GLYCEROPHOSPHATE\PHOSPHORIC ACID\SODIUM PHOSPHATE, DIBASIC
     Indication: BLOOD ELECTROLYTES ABNORMAL
     Dosage: UNK
     Dates: start: 20170615

REACTIONS (1)
  - Hypokalaemia [Recovered/Resolved]

NARRATIVE: CASE EVENT DATE: 20181019
